FAERS Safety Report 4526377-4 (Version None)
Quarter: 2004Q4

REPORT INFORMATION
  Report Type: 
  Country: None (occurrence: None)
  Receive Date: 20041210
  Receipt Date: 20041126
  Transmission Date: 20050328
  Serious: Yes (Other)
  Sender: FDA-Public Use
  Company Number: 25675

PATIENT
  Sex: Female

DRUGS (1)
  1. TAMBOCOR [Suspect]

REACTIONS (3)
  - ADRENOCORTICAL INSUFFICIENCY CHRONIC [None]
  - AUTONOMIC NEUROPATHY [None]
  - ORTHOSTATIC HYPOTENSION [None]
